FAERS Safety Report 5890416-9 (Version None)
Quarter: 2008Q3

REPORT INFORMATION
  Report Type: 
  Country: None (occurrence: None)
  Receive Date: 20080921
  Receipt Date: 20080910
  Transmission Date: 20090109
  Serious: Yes (Death, Hospitalization)
  Sender: FDA-Public Use
  Company Number: SK-JNJFOC-20080902612

PATIENT
  Sex: Male

DRUGS (2)
  1. REMICADE [Suspect]
     Indication: FISTULA
     Route: 042
  2. REMICADE [Suspect]
     Indication: CROHN'S DISEASE
     Route: 042

REACTIONS (3)
  - BRONCHOPNEUMONIA [None]
  - EMPYEMA [None]
  - PERICARDITIS [None]
